FAERS Safety Report 4405907-7 (Version None)
Quarter: 2004Q3

REPORT INFORMATION
  Report Type: 
  Country: None (occurrence: None)
  Receive Date: 20040723
  Receipt Date: 20040126
  Transmission Date: 20050211
  Serious: Yes (Hospitalization)
  Sender: FDA-Public Use
  Company Number: US-GLAXOSMITHKLINE-A0496522A

PATIENT
  Age: 71 Year
  Sex: Male

DRUGS (7)
  1. AVANDIA [Suspect]
     Route: 048
     Dates: start: 20010409, end: 20020115
  2. TRICOR [Concomitant]
  3. LOPRESSOR [Concomitant]
  4. GLYBURIDE [Concomitant]
  5. VASOTEC [Concomitant]
  6. NITROGLYN 2% OINTMENT [Concomitant]
  7. VITAMIN C [Concomitant]

REACTIONS (1)
  - CARDIAC FAILURE CONGESTIVE [None]
